FAERS Safety Report 7036374-5 (Version None)
Quarter: 2010Q4

REPORT INFORMATION
  Report Type: 
  Country: None (occurrence: None)
  Receive Date: 20101008
  Receipt Date: 20101005
  Transmission Date: 20110411
  Serious: Yes (Life-Threatening, Hospitalization)
  Sender: FDA-Public Use
  Company Number: GB-MERCK-1006GBR00046

PATIENT
  Age: 69 Year
  Sex: Female
  Weight: 108 kg

DRUGS (11)
  1. JANUVIA [Suspect]
     Indication: DIABETES MELLITUS
     Route: 048
     Dates: start: 20100422, end: 20100423
  2. ALLOPURINOL [Concomitant]
     Route: 048
     Dates: start: 20100422, end: 20100423
  3. AMLODIPINE [Concomitant]
     Route: 048
     Dates: start: 20060404
  4. FUROSEMIDE [Concomitant]
     Route: 048
     Dates: start: 20040922
  5. GLICLAZIDE [Concomitant]
     Route: 048
     Dates: start: 20010922
  6. LANSOPRAZOLE [Concomitant]
     Route: 048
     Dates: start: 20051118
  7. LOSARTAN POTASSIUM [Concomitant]
     Route: 048
     Dates: start: 20040922
  8. METFORMIN [Concomitant]
     Route: 048
     Dates: start: 20080901
  9. ACETAMINOPHEN [Concomitant]
     Route: 048
     Dates: start: 20091119
  10. PRAVASTATIN SODIUM [Concomitant]
     Route: 048
     Dates: start: 20040922
  11. QUININE [Concomitant]
     Route: 048
     Dates: start: 20100422

REACTIONS (5)
  - CEREBELLAR HAEMORRHAGE [None]
  - HEADACHE [None]
  - MUSCULOSKELETAL STIFFNESS [None]
  - PHOTOPHOBIA [None]
  - VOMITING [None]
